FAERS Safety Report 6868968-1 (Version None)
Quarter: 2010Q3

REPORT INFORMATION
  Report Type: 
  Country: None (occurrence: None)
  Receive Date: 20100722
  Receipt Date: 20080623
  Transmission Date: 20110219
  Serious: No
  Sender: FDA-Public Use
  Company Number: US-PFIZER INC-2008054290

PATIENT
  Sex: Female

DRUGS (7)
  1. CHANTIX [Suspect]
     Indication: SMOKING CESSATION THERAPY
     Route: 048
     Dates: start: 20070101
  2. ABILIFY [Concomitant]
  3. LAMICTAL [Concomitant]
  4. TOPAMAX [Concomitant]
  5. KLONOPIN [Concomitant]
     Indication: SLEEP DISORDER
  6. ROZEREM [Concomitant]
     Indication: SLEEP DISORDER
  7. TRAZODONE [Concomitant]
     Indication: SLEEP DISORDER

REACTIONS (6)
  - ABNORMAL DREAMS [None]
  - BIPOLAR DISORDER [None]
  - DEPRESSION [None]
  - NAUSEA [None]
  - NERVOUSNESS [None]
  - VOMITING [None]
